FAERS Safety Report 7998300-1 (Version None)
Quarter: 2011Q4

REPORT INFORMATION
  Report Type: 
  Country: None (occurrence: None)
  Receive Date: 20111221
  Receipt Date: 20110627
  Transmission Date: 20120403
  Serious: No
  Sender: FDA-Public Use
  Company Number: US-GLAXOSMITHKLINE-A0933244A

PATIENT
  Age: 61 Year
  Sex: Female

DRUGS (7)
  1. MULTI-VITAMINS [Concomitant]
  2. CRESTOR [Concomitant]
  3. GREEN TEA [Concomitant]
  4. CO Q10 [Concomitant]
  5. PRILOSEC [Concomitant]
  6. LOVAZA [Suspect]
     Indication: BLOOD TRIGLYCERIDES INCREASED
     Dosage: 4G PER DAY
     Route: 048
     Dates: start: 20110101
  7. CALCIUM [Concomitant]

REACTIONS (3)
  - NAUSEA [None]
  - VOMITING [None]
  - ABDOMINAL DISTENSION [None]
